FAERS Safety Report 12277367 (Version 2)
Quarter: 2016Q2

REPORT INFORMATION
  Report Type: Spontaneous
  Country: GB (occurrence: GB)
  Receive Date: 20160418
  Receipt Date: 20160425
  Transmission Date: 20160815
  Serious: Yes (Death, Hospitalization)
  Sender: FDA-Public Use
  Company Number: GB-SA-2016SA076605

PATIENT
  Age: 60 Year
  Sex: Male

DRUGS (8)
  1. CAPECITABINE. [Suspect]
     Active Substance: CAPECITABINE
     Indication: ADENOCARCINOMA OF COLON
     Route: 065
  2. OXALIPLATIN. [Suspect]
     Active Substance: OXALIPLATIN
     Indication: ADENOCARCINOMA OF COLON
     Route: 065
  3. OXALIPLATIN. [Suspect]
     Active Substance: OXALIPLATIN
     Indication: METASTASES TO LIVER
     Route: 065
  4. CAPECITABINE. [Suspect]
     Active Substance: CAPECITABINE
     Indication: METASTASES TO LIVER
     Route: 065
  5. CAPECITABINE. [Suspect]
     Active Substance: CAPECITABINE
     Indication: ADENOCARCINOMA OF COLON
     Route: 065
  6. CAPECITABINE. [Suspect]
     Active Substance: CAPECITABINE
     Indication: METASTASES TO LIVER
     Route: 065
  7. OXALIPLATIN. [Suspect]
     Active Substance: OXALIPLATIN
     Indication: ADENOCARCINOMA OF COLON
     Route: 065
  8. OXALIPLATIN. [Suspect]
     Active Substance: OXALIPLATIN
     Indication: METASTASES TO LIVER
     Route: 065

REACTIONS (16)
  - Multiple organ dysfunction syndrome [Fatal]
  - Sepsis [Fatal]
  - Acute kidney injury [Fatal]
  - Hepatic failure [Fatal]
  - Periportal sinus dilatation [Fatal]
  - Hyponatraemia [Fatal]
  - Pleural effusion [Fatal]
  - Hypoxia [Fatal]
  - Hypotension [Fatal]
  - Portal hypertension [Fatal]
  - Stoma site haemorrhage [Fatal]
  - Hypophagia [Fatal]
  - Ascites [Fatal]
  - Stomal varices [Fatal]
  - Hepatic atrophy [Fatal]
  - Malnutrition [Fatal]
